FAERS Safety Report 6371085-0 (Version None)
Quarter: 2009Q3

REPORT INFORMATION
  Report Type: 
  Country: None (occurrence: None)
  Receive Date: 20090923
  Receipt Date: 20090914
  Transmission Date: 20100115
  Serious: Yes (Hospitalization, Other)
  Sender: FDA-Public Use
  Company Number: PHEH2009US10734

PATIENT
  Sex: Male
  Weight: 73.469 kg

DRUGS (9)
  1. EXJADE [Suspect]
     Indication: MYELODYSPLASTIC SYNDROME
     Dosage: 1500 MG, QD
     Route: 048
     Dates: start: 20090624, end: 20090910
  2. FOLIC ACID [Concomitant]
  3. JANUVIA [Concomitant]
     Indication: DIABETES MELLITUS
  4. PAXIL [Concomitant]
     Indication: DEPRESSION
     Dosage: 30 MG
     Route: 048
  5. ASPIRIN [Concomitant]
  6. ATENOLOL [Concomitant]
     Dosage: 100 MG, QD
     Route: 048
  7. PLAVIX [Concomitant]
  8. ASTELIN [Concomitant]
  9. NITROGLYCERIN [Concomitant]
     Indication: CORONARY ARTERY DISEASE
     Dosage: UNK

REACTIONS (2)
  - BLOOD CREATININE INCREASED [None]
  - LABORATORY TEST ABNORMAL [None]
